FAERS Safety Report 21070326 (Version 2)
Quarter: 2022Q3

REPORT INFORMATION
  Report Type: Spontaneous
  Country: BR (occurrence: BR)
  Receive Date: 20220712
  Receipt Date: 20220722
  Transmission Date: 20221027
  Serious: Yes (Hospitalization, Other)
  Sender: FDA-Public Use
  Company Number: BR-SA-SAC20220706001262

PATIENT
  Age: 27 Year
  Sex: Male

DRUGS (5)
  1. LEMTRADA [Suspect]
     Active Substance: ALEMTUZUMAB
     Indication: Multiple sclerosis
     Dosage: 5 DF
     Route: 042
     Dates: start: 2021
  2. LEMTRADA [Suspect]
     Active Substance: ALEMTUZUMAB
     Dosage: 3 DF
     Route: 042
     Dates: start: 2022, end: 2022
  3. CODEINE [Concomitant]
     Active Substance: CODEINE
     Indication: Pain
     Dosage: UNK, QD
     Route: 048
  4. AMITRIPTYLINE [Concomitant]
     Active Substance: AMITRIPTYLINE
     Indication: Anxiety
     Dosage: UNK UNK, QD
     Route: 048
  5. ACETAMINOPHEN [Concomitant]
     Active Substance: ACETAMINOPHEN
     Indication: Pain
     Dosage: UNK UNK, QD
     Route: 048

REACTIONS (6)
  - Coma [Recovered/Resolved]
  - Syncope [Unknown]
  - Seizure [Not Recovered/Not Resolved]
  - Epilepsy [Not Recovered/Not Resolved]
  - Amnesia [Recovered/Resolved]
  - Headache [Unknown]

NARRATIVE: CASE EVENT DATE: 20210101
